FAERS Safety Report 11833645 (Version 1)
Quarter: 2015Q4

REPORT INFORMATION
  Report Type: Spontaneous
  Country: DE (occurrence: DE)
  Receive Date: 20151214
  Receipt Date: 20151214
  Transmission Date: 20160305
  Serious: Yes (Hospitalization)
  Sender: FDA-Public Use
  Company Number: DE-UCBSA-2015040146

PATIENT
  Sex: Female

DRUGS (1)
  1. LEGANTO [Suspect]
     Active Substance: ROTIGOTINE
     Indication: PRODUCT USED FOR UNKNOWN INDICATION
     Dosage: UNK, 1 PATCH OVER 3 DAYS (STRENGTH: 2 MG/24 HR)
     Dates: start: 201511

REACTIONS (4)
  - Hyperhidrosis [Unknown]
  - Vomiting [Unknown]
  - Gastroenteritis [Unknown]
  - Nausea [Unknown]

NARRATIVE: CASE EVENT DATE: 2015
